FAERS Safety Report 5475220-8 (Version None)
Quarter: 2007Q4

REPORT INFORMATION
  Report Type: 
  Country: None (occurrence: None)
  Receive Date: 20071002
  Receipt Date: 20070921
  Transmission Date: 20080405
  Serious: Yes (Other)
  Sender: FDA-Public Use
  Company Number: JP-PFIZER INC-2007079499

PATIENT
  Age: 55 Year
  Sex: Female

DRUGS (2)
  1. DETRUSITOL LA [Suspect]
     Dosage: DAILY DOSE:4MG
     Route: 048
  2. BUP-4 [Concomitant]
     Route: 048
     Dates: start: 20070822, end: 20070907

REACTIONS (1)
  - FACE OEDEMA [None]
